FAERS Safety Report 4478225-9 (Version None)
Quarter: 2004Q4

REPORT INFORMATION
  Report Type: 
  Country: None (occurrence: None)
  Receive Date: 20041018
  Receipt Date: 20041018
  Transmission Date: 20050328
  Serious: Yes (Hospitalization)
  Sender: FDA-Public Use
  Company Number: None

PATIENT
  Sex: Male

DRUGS (8)
  1. CARBAMAZEPINE [Suspect]
     Indication: CONVULSION
     Dosage: 400 MG BID
  2. LISINOPRIL [Concomitant]
  3. NICOTINE [Concomitant]
  4. OMEPRAZOLE [Concomitant]
  5. M.V.I. [Concomitant]
  6. THIAMINE [Concomitant]
  7. HYDROCHLOROTHIAZIDE [Concomitant]
  8. REMERON [Concomitant]

REACTIONS (4)
  - INAPPROPRIATE ANTIDIURETIC HORMONE SECRETION [None]
  - NAUSEA [None]
  - VERTIGO [None]
  - VOMITING [None]
